FAERS Safety Report 17313785 (Version 1)
Quarter: 2020Q1

REPORT INFORMATION
  Report Type: Spontaneous
  Country: US (occurrence: US)
  Receive Date: 20200107
  Receipt Date: 20200107
  Transmission Date: 20200409
  Serious: Yes (Hospitalization)
  Sender: FDA-Public Use
  Company Number: None

PATIENT
  Sex: Female
  Weight: 69.2 kg

DRUGS (1)
  1. TOPOTECAN [Suspect]
     Active Substance: TOPOTECAN HYDROCHLORIDE

REACTIONS (11)
  - Clostridium test positive [None]
  - Neutrophil count decreased [None]
  - Haematochezia [None]
  - Ovarian neoplasm [None]
  - Large intestine perforation [None]
  - Diarrhoea [None]
  - Chills [None]
  - Tumour invasion [None]
  - Abdominal adhesions [None]
  - Vomiting [None]
  - Abdominal pain [None]

NARRATIVE: CASE EVENT DATE: 20191230
